FAERS Safety Report 4764702-X (Version None)
Quarter: 2005Q3

REPORT INFORMATION
  Report Type: 
  Country: None (occurrence: None)
  Receive Date: 20050909
  Receipt Date: 20050523
  Transmission Date: 20060218
  Serious: Yes (Death, Life-Threatening)
  Sender: FDA-Public Use
  Company Number: DE-MERCK-0505DEU00168

PATIENT
  Age: 65 Year
  Sex: Male

DRUGS (3)
  1. VIOXX [Suspect]
     Indication: OSTEOARTHRITIS
     Route: 048
     Dates: start: 20030101, end: 20040913
  2. VIOXX [Suspect]
     Indication: PERIARTHRITIS
     Route: 048
     Dates: start: 20030101, end: 20040913
  3. DICLOFENAC [Concomitant]
     Route: 065
     Dates: start: 20031125

REACTIONS (1)
  - MYOCARDIAL INFARCTION [None]
